FAERS Safety Report 17287557 (Version 1)
Quarter: 2020Q1

REPORT INFORMATION
  Report Type: Spontaneous
  Country: ES (occurrence: ES)
  Receive Date: 20200120
  Receipt Date: 20200120
  Transmission Date: 20200409
  Serious: Yes (Death, Hospitalization, Other)
  Sender: FDA-Public Use
  Company Number: ES-TEVA-2020-ES-1169241

PATIENT
  Age: 76 Year
  Sex: Female

DRUGS (3)
  1. SINEMET [Concomitant]
     Active Substance: CARBIDOPA\LEVODOPA
     Indication: PARKINSON^S DISEASE
     Route: 065
  2. LINEZOLID 600 MG TEVA [Suspect]
     Active Substance: LINEZOLID
     Indication: ABSCESS LIMB
     Dosage: 1200 MILLIGRAM DAILY;
     Route: 048
     Dates: start: 201903, end: 20190812
  3. LINEZOLID. [Suspect]
     Active Substance: LINEZOLID
     Route: 065
     Dates: start: 201908

REACTIONS (6)
  - Abdominal discomfort [Unknown]
  - Urinary tract infection [Unknown]
  - Asthenia [Unknown]
  - Internal haemorrhage [Fatal]
  - Tremor [Unknown]
  - Hyperhidrosis [Unknown]

NARRATIVE: CASE EVENT DATE: 201904
